FAERS Safety Report 16695551 (Version 1)
Quarter: 2019Q3

REPORT INFORMATION
  Report Type: Spontaneous
  Country: US (occurrence: US)
  Receive Date: 20190813
  Receipt Date: 20190813
  Transmission Date: 20191004
  Serious: No
  Sender: FDA-Public Use
  Company Number: US-LUPIN PHARMACEUTICALS INC.-2018-05944

PATIENT
  Age: 62 Year
  Sex: Female
  Weight: 48.98 kg

DRUGS (2)
  1. ETHAMBUTOL HYDROCHLORIDE TABLETS USP 400 MG [Suspect]
     Active Substance: ETHAMBUTOL HYDROCHLORIDE
     Indication: SARCOIDOSIS
  2. ETHAMBUTOL HYDROCHLORIDE TABLETS USP 400 MG [Suspect]
     Active Substance: ETHAMBUTOL HYDROCHLORIDE
     Indication: MYCOBACTERIAL INFECTION
     Dosage: UNK  (3X A WEEK)
     Route: 048
     Dates: start: 20180501

REACTIONS (3)
  - Confusional state [Not Recovered/Not Resolved]
  - Arthralgia [Not Recovered/Not Resolved]
  - Neuralgia [Not Recovered/Not Resolved]

NARRATIVE: CASE EVENT DATE: 20180529
